FAERS Safety Report 6515971-7 (Version None)
Quarter: 2009Q4

REPORT INFORMATION
  Report Type: 
  Country: None (occurrence: None)
  Receive Date: 20091223
  Receipt Date: 20091215
  Transmission Date: 20100525
  Serious: Yes (Hospitalization)
  Sender: FDA-Public Use
  Company Number: FR-BAYER-200943196GPV

PATIENT
  Age: 77 Year
  Sex: Male
  Weight: 69 kg

DRUGS (4)
  1. SORAFENIB [Suspect]
     Indication: HEPATIC NEOPLASM MALIGNANT
     Dosage: TOTAL DAILY DOSE: 800 MG
     Route: 048
     Dates: start: 20091126, end: 20091213
  2. PLACEBO [Suspect]
     Indication: HEPATIC NEOPLASM MALIGNANT
     Dosage: TOTAL DAILY DOSE: 150 MG
     Route: 048
     Dates: start: 20091126, end: 20091213
  3. AVLOCARDYL [Concomitant]
     Indication: HYPERTENSION
     Route: 048
     Dates: start: 20090825
  4. MOPRAL [Concomitant]
     Indication: PROPHYLAXIS
     Dates: start: 20091214

REACTIONS (1)
  - GENERAL PHYSICAL HEALTH DETERIORATION [None]
